FAERS Safety Report 5903725-1 (Version None)
Quarter: 2008Q3

REPORT INFORMATION
  Report Type: 
  Country: None (occurrence: None)
  Receive Date: 20080930
  Receipt Date: 20080918
  Transmission Date: 20090109
  Serious: No
  Sender: FDA-Public Use
  Company Number: US-B.I. PHARMACEUTICALS,INC./RIDGEFIELD-2008-BP-14650BP

PATIENT
  Age: 70 Year
  Sex: Male

DRUGS (5)
  1. ZANTAC 150 [Suspect]
     Indication: EROSIVE OESOPHAGITIS
     Dosage: 300MG
     Route: 048
     Dates: start: 20080901
  2. ZANTAC 150 [Suspect]
     Indication: HIATUS HERNIA
  3. SLEEPING PILLS [Concomitant]
  4. WELLBUTRIN [Concomitant]
  5. TRAZODONE HCL [Concomitant]

REACTIONS (1)
  - FATIGUE [None]
